FAERS Safety Report 9372847 (Version 4)
Quarter: 2014Q2

REPORT INFORMATION
  Report Type: Report from Study
  Country: CA (occurrence: CA)
  Receive Date: 20130627
  Receipt Date: 20140508
  Transmission Date: 20141212
  Serious: Yes (Other)
  Sender: FDA-Public Use
  Company Number: PHHY2013CA066381

PATIENT
  Age: 66 Year
  Sex: Female

DRUGS (3)
  1. TASIGNA [Suspect]
     Indication: CHRONIC MYELOID LEUKAEMIA
     Dosage: 150 MG, BID
     Route: 048
     Dates: start: 20130207
  2. TASIGNA [Suspect]
     Dosage: 300 MG, BID
  3. PLAVIX [Concomitant]

REACTIONS (12)
  - Skin cancer [Unknown]
  - Second primary malignancy [Unknown]
  - Faeces discoloured [Unknown]
  - Headache [Unknown]
  - Diarrhoea [Unknown]
  - Nausea [Unknown]
  - Nasopharyngitis [Unknown]
  - Cough [Unknown]
  - Food interaction [Unknown]
  - Increased appetite [Unknown]
  - Weight increased [Unknown]
  - Incorrect dose administered [Unknown]
